FAERS Safety Report 24007462 (Version 1)
Quarter: 2024Q2

REPORT INFORMATION
  Report Type: Report from Study
  Country: CO (occurrence: CO)
  Receive Date: 20240625
  Receipt Date: 20240625
  Transmission Date: 20240715
  Serious: Yes (Hospitalization, Other)
  Sender: FDA-Public Use
  Company Number: CO-NOVOPROD-1240060

PATIENT
  Age: 79 Year
  Sex: Female

DRUGS (1)
  1. OZEMPIC [Suspect]
     Active Substance: SEMAGLUTIDE
     Indication: Type 2 diabetes mellitus
     Dosage: UNK, QW
     Route: 058

REACTIONS (11)
  - Diarrhoea [Unknown]
  - Vomiting [Unknown]
  - Decreased appetite [Unknown]
  - Blood glucose increased [Unknown]
  - Haematochezia [Unknown]
  - Ill-defined disorder [Unknown]
  - Dyspnoea [Unknown]
  - Pneumonia [Unknown]
  - Blood pressure increased [Unknown]
  - Myocardial infarction [Unknown]
  - Respiratory arrest [Unknown]

NARRATIVE: CASE EVENT DATE: 20231201
